FAERS Safety Report 15062459 (Version 1)
Quarter: 2018Q2

REPORT INFORMATION
  Report Type: Spontaneous
  Country: US (occurrence: US)
  Receive Date: 20180625
  Receipt Date: 20180625
  Transmission Date: 20180711
  Serious: Yes (Hospitalization)
  Sender: FDA-Public Use
  Company Number: US-AMGEN-USASP2011038651

PATIENT
  Age: 76 Year
  Sex: Female

DRUGS (1)
  1. SENSIPAR [Suspect]
     Active Substance: CINACALCET HYDROCHLORIDE
     Indication: PRODUCT USED FOR UNKNOWN INDICATION
     Dosage: 30 MG, BID
     Dates: end: 2011

REACTIONS (11)
  - Incorrect dose administered [Unknown]
  - Blood potassium abnormal [Unknown]
  - Blood phosphorus abnormal [Unknown]
  - Blood magnesium abnormal [Unknown]
  - Glomerular filtration rate abnormal [Unknown]
  - Protein total abnormal [Unknown]
  - Blood pH abnormal [Unknown]
  - Blood creatinine abnormal [Unknown]
  - Blood chloride abnormal [Unknown]
  - Blood urea abnormal [Unknown]
  - Hypocalcaemia [Unknown]

NARRATIVE: CASE EVENT DATE: 20110701
